FAERS Safety Report 4767442-6 (Version None)
Quarter: 2005Q3

REPORT INFORMATION
  Report Type: 
  Country: None (occurrence: None)
  Receive Date: 20050913
  Receipt Date: 20050829
  Transmission Date: 20060218
  Serious: Yes (Other)
  Sender: FDA-Public Use
  Company Number: DEWYE937529AUG05

PATIENT
  Age: 39 Year
  Sex: Female

DRUGS (4)
  1. ENBREL [Suspect]
     Indication: RHEUMATOID ARTHRITIS
     Route: 058
     Dates: start: 20050101, end: 20050301
  2. PREDNISOLONE [Concomitant]
     Route: 048
     Dates: start: 19960601
  3. DICLOFENAC [Concomitant]
     Dosage: UP TO 3 X 75MG DAILY
     Route: 065
     Dates: start: 20011101
  4. PRES PLUS [Concomitant]

REACTIONS (1)
  - ASTHMA [None]
